FAERS Safety Report 11151533 (Version 2)
Quarter: 2015Q3

REPORT INFORMATION
  Report Type: Spontaneous
  Country: FR (occurrence: FR)
  Receive Date: 20150601
  Receipt Date: 20150804
  Transmission Date: 20151125
  Serious: Yes (Hospitalization)
  Sender: FDA-Public Use
  Company Number: FR-BIOGENIDEC-2015BI072023

PATIENT
  Age: 39 Year
  Sex: Male

DRUGS (4)
  1. METHYLPREDNISOLONE. [Concomitant]
     Active Substance: METHYLPREDNISOLONE
     Route: 042
  2. METHYLPREDNISOLONE. [Concomitant]
     Active Substance: METHYLPREDNISOLONE
     Route: 042
  3. TECFIDERA [Suspect]
     Active Substance: DIMETHYL FUMARATE
     Indication: MULTIPLE SCLEROSIS
     Dates: start: 20140328, end: 20140403
  4. TECFIDERA [Suspect]
     Active Substance: DIMETHYL FUMARATE
     Indication: MULTIPLE SCLEROSIS
     Dates: start: 20140404

REACTIONS (11)
  - Fatigue [Unknown]
  - Drug ineffective [Unknown]
  - Nuclear magnetic resonance imaging abnormal [Unknown]
  - Hemiparesis [Unknown]
  - Gastrointestinal disorder [Unknown]
  - General symptom [Unknown]
  - Asthenia [Unknown]
  - Headache [Unknown]
  - Dysarthria [Unknown]
  - Inflammation [Unknown]
  - Multiple sclerosis [Unknown]
